FAERS Safety Report 24913682 (Version 1)
Quarter: 2025Q1

REPORT INFORMATION
  Report Type: Spontaneous
  Country: CN (occurrence: CN)
  Receive Date: 20250201
  Receipt Date: 20250201
  Transmission Date: 20250408
  Serious: Yes (Hospitalization)
  Sender: BEIGENE
  Company Number: CN-BEIGENE-BGN-2025-001343

PATIENT
  Age: 68 Year
  Weight: 75 kg

DRUGS (1)
  1. TISLELIZUMAB [Suspect]
     Active Substance: TISLELIZUMAB
     Indication: Lung neoplasm malignant

REACTIONS (1)
  - Immune-mediated hepatic disorder [Recovering/Resolving]
